FAERS Safety Report 8586372-5 (Version None)
Quarter: 2012Q3

REPORT INFORMATION
  Report Type: 
  Country: None (occurrence: None)
  Receive Date: 20120810
  Receipt Date: 20120808
  Transmission Date: 20120928
  Serious: Yes (Hospitalization)
  Sender: FDA-Public Use
  Company Number: GB-ROCHE-1099606

PATIENT
  Sex: Male
  Weight: 93 kg

DRUGS (2)
  1. MABTHERA [Suspect]
     Indication: PRODUCT USED FOR UNKNOWN INDICATION
     Dosage: LAST DOSE PRIOR TO EVENT: 13/DEC/2011
     Dates: start: 20111129
  2. METHOTREXATE [Concomitant]

REACTIONS (1)
  - PANCREATITIS ACUTE [None]
